FAERS Safety Report 6385155-4 (Version None)
Quarter: 2009Q4

REPORT INFORMATION
  Report Type: 
  Country: None (occurrence: None)
  Receive Date: 20091002
  Receipt Date: 20090929
  Transmission Date: 20100525
  Serious: Yes (Death, Life-Threatening, Hospitalization)
  Sender: FDA-Public Use
  Company Number: PT-JNJFOC-20090405321

PATIENT
  Sex: Male

DRUGS (9)
  1. TMC125 [Suspect]
     Route: 048
     Dates: end: 20071213
  2. TMC125 [Suspect]
     Indication: HIV INFECTION
     Route: 048
     Dates: end: 20071213
  3. RALTEGRAVIR [Concomitant]
     Indication: HIV INFECTION
  4. TENOFOVIR [Concomitant]
     Indication: HIV INFECTION
  5. COVERSYL [Concomitant]
     Dates: start: 20070705
  6. OMEPRAZOLE [Concomitant]
     Dates: start: 20071215
  7. CARVEDILOL [Concomitant]
     Dates: start: 20070705
  8. PRIMPERAN [Concomitant]
  9. ATARAX [Concomitant]

REACTIONS (2)
  - MYOCARDIAL INFARCTION [None]
  - STEVENS-JOHNSON SYNDROME [None]
